FAERS Safety Report 26150430 (Version 1)
Quarter: 2025Q4

REPORT INFORMATION
  Report Type: Spontaneous
  Country: US (occurrence: US)
  Receive Date: 20251212
  Receipt Date: 20251212
  Transmission Date: 20260118
  Serious: No
  Sender: ALCON
  Company Number: US-ALCON LABORATORIES-ALC2025US005876

PATIENT
  Sex: Female

DRUGS (1)
  1. ACOLTREMON [Suspect]
     Active Substance: ACOLTREMON
     Indication: Dry eye
     Dosage: 1 DROP INTO AFFECTED EYE(S) TWICE A DAY APPROXIMATELY 12 HOURS APART
     Route: 047
     Dates: start: 20250927, end: 20251005

REACTIONS (2)
  - Drug ineffective [Unknown]
  - Eye irritation [Unknown]
